FAERS Safety Report 18878623 (Version 1)
Quarter: 2021Q1

REPORT INFORMATION
  Report Type: Spontaneous
  Country: US (occurrence: US)
  Receive Date: 20210211
  Receipt Date: 20210211
  Transmission Date: 20210420
  Serious: No
  Sender: FDA-Public Use
  Company Number: None

PATIENT
  Age: 65 Year
  Sex: Female
  Weight: 63.9 kg

DRUGS (10)
  1. VITAMIN D [Concomitant]
     Active Substance: VITAMIN D NOS
  2. OMEPRAZOLE. [Concomitant]
     Active Substance: OMEPRAZOLE
  3. CARTIA XT BABY ASPIRIN [Concomitant]
  4. NOVOLG INSULIN [Concomitant]
  5. RECLAST [Suspect]
     Active Substance: ZOLEDRONIC ACID
     Indication: OSTEOPOROSIS
     Dates: start: 20210204
  6. ROSUVASTATIN. [Concomitant]
     Active Substance: ROSUVASTATIN
  7. LEVOTHYROXINE. [Concomitant]
     Active Substance: LEVOTHYROXINE
  8. LUMIGAN [Concomitant]
     Active Substance: BIMATOPROST
  9. ISOSORBIDE. [Concomitant]
     Active Substance: ISOSORBIDE
  10. VITAMIN B12 [Suspect]
     Active Substance: CYANOCOBALAMIN

REACTIONS (12)
  - Renal pain [None]
  - Pain in jaw [None]
  - Myalgia [None]
  - Pain in extremity [None]
  - Diarrhoea [None]
  - Chills [None]
  - Headache [None]
  - Eye pain [None]
  - Arthralgia [None]
  - Pyrexia [None]
  - Nausea [None]
  - Vision blurred [None]

NARRATIVE: CASE EVENT DATE: 20210204
